FAERS Safety Report 8354645-7 (Version None)
Quarter: 2012Q2

REPORT INFORMATION
  Report Type: 
  Country: None (occurrence: None)
  Receive Date: 20120511
  Receipt Date: 20120504
  Transmission Date: 20120825
  Serious: Yes (Life-Threatening, Hospitalization)
  Sender: FDA-Public Use
  Company Number: US-BAYER-2012-012178

PATIENT
  Age: 48 Year
  Sex: Female

DRUGS (8)
  1. OXYCODONE HCL AND ACETAMINOPHEN [Concomitant]
     Dosage: 7.5/325 MG AS NEEDED
     Route: 048
  2. SYNTHROID [Concomitant]
     Dosage: 75 MCG/24HR, QD
     Route: 048
  3. CYTOMEL [Concomitant]
     Dosage: 25 MCG/24HR, QD
     Route: 048
  4. DROSPIRENONE AND ETHINYL ESTRADIOL [Suspect]
     Route: 048
  5. XANAX [Concomitant]
     Dosage: 1 MG, PRN
     Route: 048
  6. CARISOPRODOL [Concomitant]
     Dosage: 350 MG, BID
     Route: 048
  7. DIAZEPAM [Concomitant]
     Dosage: 5 MG, PRN
     Route: 048
  8. YASMIN [Suspect]
     Indication: MENOPAUSAL SYMPTOMS

REACTIONS (7)
  - ANHEDONIA [None]
  - PAIN [None]
  - INJURY [None]
  - FEAR [None]
  - PULMONARY EMBOLISM [None]
  - ANXIETY [None]
  - EMOTIONAL DISTRESS [None]
